FAERS Safety Report 4808665-7 (Version None)
Quarter: 2005Q4

REPORT INFORMATION
  Report Type: 
  Country: None (occurrence: None)
  Receive Date: 20051021
  Receipt Date: 20011210
  Transmission Date: 20060501
  Serious: No
  Sender: FDA-Public Use
  Company Number: DE_010906874

PATIENT
  Age: 46 Year
  Sex: Male

DRUGS (1)
  1. ZYPREXA [Suspect]
     Indication: PSYCHOTIC DISORDER
     Dosage: 20 MG/DAY
     Dates: start: 20010907, end: 20011205

REACTIONS (5)
  - ASTHENIA [None]
  - HYPOKINESIA [None]
  - OEDEMA PERIPHERAL [None]
  - PARAESTHESIA [None]
  - WHITE BLOOD CELL COUNT DECREASED [None]
